FAERS Safety Report 10543716 (Version 2)
Quarter: 2014Q4

REPORT INFORMATION
  Report Type: Report from Study
  Country: VE (occurrence: VE)
  Receive Date: 20141027
  Receipt Date: 20141027
  Transmission Date: 20150529
  Serious: Yes (Other)
  Sender: FDA-Public Use
  Company Number: VE-ABBVIE-13P-178-1075504-00

PATIENT
  Sex: Female
  Weight: 80 kg

DRUGS (3)
  1. ENBREL [Concomitant]
     Active Substance: ETANERCEPT
     Indication: PSORIASIS
     Route: 058
     Dates: start: 2010
  2. METHOTREXATE [Concomitant]
     Active Substance: METHOTREXATE
     Indication: PSORIASIS
     Dosage: 2 OR 3 PER WEEK
     Route: 058
  3. HUMIRA [Suspect]
     Active Substance: ADALIMUMAB
     Indication: PSORIASIS
     Dosage: 1 PREFILLED SYRINGE
     Route: 058
     Dates: start: 20090707, end: 2010

REACTIONS (2)
  - Psychotic disorder [Recovered/Resolved]
  - Adverse drug reaction [Not Recovered/Not Resolved]

NARRATIVE: CASE EVENT DATE: 2011
